FAERS Safety Report 9452247 (Version 1)
Quarter: 2013Q3

REPORT INFORMATION
  Report Type: Spontaneous
  Country: US (occurrence: None)
  Receive Date: 20130808
  Receipt Date: 20130808
  Transmission Date: 20140515
  Serious: Yes (Other)
  Sender: FDA-Public Use
  Company Number: None

PATIENT
  Age: 56 Year
  Sex: Female
  Weight: 52.16 kg

DRUGS (1)
  1. GAMMAGARD [Suspect]
     Dates: start: 20130409, end: 20130711

REACTIONS (3)
  - Paraesthesia [None]
  - Toothache [None]
  - Infusion related reaction [None]
